FAERS Safety Report 10175505 (Version 1)
Quarter: 2014Q2

REPORT INFORMATION
  Report Type: Report from Study
  Country: US (occurrence: US)
  Receive Date: 20140516
  Receipt Date: 20140516
  Transmission Date: 20141212
  Serious: Yes (Other)
  Sender: FDA-Public Use
  Company Number: US-ROCHE-1400958

PATIENT
  Age: 16 Year
  Sex: Female

DRUGS (2)
  1. BEVACIZUMAB [Suspect]
     Indication: RETINAL DISORDER
     Route: 050
  2. BEVACIZUMAB [Suspect]
     Indication: CHOROIDITIS

REACTIONS (2)
  - Benign intracranial hypertension [Unknown]
  - Off label use [Unknown]
